FAERS Safety Report 13185211 (Version 7)
Quarter: 2020Q4

REPORT INFORMATION
  Report Type: Report from Study
  Country: US (occurrence: US)
  Receive Date: 20170203
  Receipt Date: 20201014
  Transmission Date: 20210113
  Serious: Yes (Life-Threatening, Hospitalization)
  Sender: FDA-Public Use
  Company Number: US-PFIZER INC-2017043209

PATIENT
  Age: 55 Year
  Sex: Male
  Weight: 79 kg

DRUGS (14)
  1. INLYTA [Suspect]
     Active Substance: AXITINIB
     Indication: RENAL CELL CARCINOMA
     Dosage: 5 MG, TWICE DAILY, CONTINUOUS
     Route: 048
     Dates: start: 20161013, end: 20170127
  2. CARVEDILOL. [Concomitant]
     Active Substance: CARVEDILOL
     Indication: HYPERTENSION
  3. MICONAZOLE. [Concomitant]
     Active Substance: MICONAZOLE
     Indication: RASH
     Dosage: 2 %, POWDER, AS NEEDED
     Route: 061
     Dates: start: 20161206, end: 20170105
  4. PREDNISONE. [Concomitant]
     Active Substance: PREDNISONE
     Indication: MYOCARDITIS
     Dosage: 2.5 MG, 1X/DAY
     Route: 048
     Dates: start: 20170111, end: 20170122
  5. FUROSEMIDE. [Concomitant]
     Active Substance: FUROSEMIDE
     Indication: OEDEMA
     Dosage: 40 MG, 1X/DAY
     Route: 048
  6. VALACYCLOVIR [VALACICLOVIR HYDROCHLORIDE] [Concomitant]
     Active Substance: VALACYCLOVIR HYDROCHLORIDE
     Indication: HERPES SIMPLEX
     Dosage: 500 MG, 2X/DAY
     Route: 048
  7. VITAMIN D3 [Concomitant]
     Active Substance: CHOLECALCIFEROL
     Indication: HYPERTENSION
     Dosage: 400 IU, 1X/DAY
     Route: 048
     Dates: start: 20161116
  8. DEXAMETHASONE. [Concomitant]
     Active Substance: DEXAMETHASONE
     Indication: ORAL PAIN
     Dosage: 0.5 MG/ML, 4X/DAY
     Route: 048
     Dates: start: 20170105, end: 20170105
  9. LEVOTHYROXINE. [Concomitant]
     Active Substance: LEVOTHYROXINE
     Indication: HYPOTHYROIDISM
     Dosage: 75 UG, 1X/DAY
     Route: 048
  10. LASIX [Concomitant]
     Active Substance: FUROSEMIDE
     Indication: MYOCARDITIS
     Dosage: 40 MG, QD
     Route: 048
     Dates: start: 20161116, end: 20170207
  11. AVELUMAB [Suspect]
     Active Substance: AVELUMAB
     Indication: RENAL CELL CARCINOMA
     Dosage: 10 MG/KG, CYCLIC (EVERY 2 WEEKS)
     Route: 042
     Dates: start: 20161013, end: 20161027
  12. CARVEDILOL. [Concomitant]
     Active Substance: CARVEDILOL
     Indication: CARDIAC FAILURE
     Dosage: 12.5 MG, 2X/DAY
     Route: 048
     Dates: start: 20161129, end: 20161221
  13. VITAMIN D3 [Concomitant]
     Active Substance: CHOLECALCIFEROL
     Indication: CARDIAC FAILURE
  14. VALACYCLOVIR [VALACICLOVIR HYDROCHLORIDE] [Concomitant]
     Active Substance: VALACYCLOVIR HYDROCHLORIDE
     Indication: CANDIDA INFECTION
     Dosage: 1000 MG, 2X/DAY
     Route: 048
     Dates: start: 20161212, end: 20170126

REACTIONS (2)
  - Autoimmune myocarditis [Recovered/Resolved]
  - Cardiac tamponade [Recovered/Resolved with Sequelae]

NARRATIVE: CASE EVENT DATE: 20170127
